FAERS Safety Report 6970321-7 (Version None)
Quarter: 2010Q3

REPORT INFORMATION
  Report Type: 
  Country: None (occurrence: None)
  Receive Date: 20100823
  Receipt Date: 20100707
  Transmission Date: 20110219
  Serious: No
  Sender: FDA-Public Use
  Company Number: 010640

PATIENT
  Sex: Female

DRUGS (1)
  1. CIMZIA [Suspect]
     Indication: CROHN'S DISEASE
     Dosage: 400 MG 1X/MONTH SUBCUTANEOUS
     Route: 058
     Dates: start: 20090615

REACTIONS (9)
  - BURNING SENSATION [None]
  - CHAPPED LIPS [None]
  - CHEILITIS [None]
  - DISCOMFORT [None]
  - FATIGUE [None]
  - LIP DRY [None]
  - LIP EXFOLIATION [None]
  - LIP SWELLING [None]
  - PRURITUS [None]
